FAERS Safety Report 7759071-7 (Version None)
Quarter: 2011Q3

REPORT INFORMATION
  Report Type: 
  Country: None (occurrence: None)
  Receive Date: 20110915
  Receipt Date: 20110908
  Transmission Date: 20111222
  Serious: Yes (Other)
  Sender: FDA-Public Use
  Company Number: 122949

PATIENT
  Age: 7 Year
  Sex: Female
  Weight: 31.2982 kg

DRUGS (1)
  1. METHOTREXATE [Suspect]
     Indication: OSTEOMYELITIS
     Dosage: 25 ONCE PER WEEK SUBCUTANEOUSLY
     Route: 058
     Dates: start: 20110729

REACTIONS (1)
  - MEDICATION ERROR [None]
